FAERS Safety Report 24797904 (Version 1)
Quarter: 2025Q1

REPORT INFORMATION
  Report Type: Spontaneous
  Country: US (occurrence: US)
  Receive Date: 20250102
  Receipt Date: 20250102
  Transmission Date: 20250409
  Serious: No
  Sender: SANDOZ
  Company Number: US-SANDOZ-SDZ2024US106012

PATIENT

DRUGS (2)
  1. LISINOPRIL [Suspect]
     Active Substance: LISINOPRIL
     Indication: Proteinuria
     Route: 065
  2. LOSARTAN [Suspect]
     Active Substance: LOSARTAN
     Indication: Proteinuria
     Route: 065

REACTIONS (2)
  - Cough [Unknown]
  - Product substitution [Unknown]
